FAERS Safety Report 22253721 (Version 1)
Quarter: 2023Q2

REPORT INFORMATION
  Report Type: Spontaneous
  Country: ZA (occurrence: ZA)
  Receive Date: 20230426
  Receipt Date: 20230426
  Transmission Date: 20230721
  Serious: Yes (Other)
  Sender: FDA-Public Use
  Company Number: ZA-STRIDES ARCOLAB LIMITED-2023SP005874

PATIENT
  Age: 39 Year
  Sex: Female

DRUGS (2)
  1. METHYLDOPA [Suspect]
     Active Substance: METHYLDOPA
     Indication: Pre-eclampsia
     Dosage: UNK
     Route: 065
  2. ENOXAPARIN [Suspect]
     Active Substance: ENOXAPARIN
     Indication: Ischaemic stroke
     Dosage: UNK (ENOXAPARIN-SODIUM WAS OMITTED 24 HOURS BEFORE THE DELIVERY)
     Route: 065

REACTIONS (3)
  - Postpartum haemorrhage [Unknown]
  - Maternal exposure during pregnancy [Unknown]
  - Off label use [Unknown]
